FAERS Safety Report 11660209 (Version 1)
Quarter: 2015Q4

REPORT INFORMATION
  Report Type: Spontaneous
  Country: US (occurrence: US)
  Receive Date: 20151026
  Receipt Date: 20151026
  Transmission Date: 20160304
  Serious: No
  Sender: FDA-Public Use
  Company Number: US-BAYER-2015-451334

PATIENT
  Sex: Male

DRUGS (3)
  1. CLARITIN [Suspect]
     Active Substance: LORATADINE
     Indication: RHINORRHOEA
  2. CLARITIN [Suspect]
     Active Substance: LORATADINE
     Indication: LACRIMATION INCREASED
     Dosage: 2 DF, UNK
     Route: 048
     Dates: start: 20151022
  3. CLARITIN [Suspect]
     Active Substance: LORATADINE
     Indication: EYE PRURITUS
     Dosage: 1 DF, UNK
     Route: 048

REACTIONS (2)
  - Drug ineffective [None]
  - Product use issue [None]

NARRATIVE: CASE EVENT DATE: 20151022
